FAERS Safety Report 8426088-9 (Version None)
Quarter: 2012Q2

REPORT INFORMATION
  Report Type: 
  Country: None (occurrence: None)
  Receive Date: 20120611
  Receipt Date: 20120605
  Transmission Date: 20120825
  Serious: Yes (Death, Life-Threatening, Other)
  Sender: FDA-Public Use
  Company Number: HU-ELI_LILLY_AND_COMPANY-HU201206001349

PATIENT
  Age: 92 Year
  Sex: Female

DRUGS (1)
  1. TERIPARATIDE [Suspect]
     Indication: OSTEOPOROSIS
     Dosage: UNK
     Route: 058
     Dates: start: 20120101, end: 20120501

REACTIONS (3)
  - SHOCK HAEMORRHAGIC [None]
  - DUODENAL ULCER [None]
  - RESPIRATORY FAILURE [None]
